FAERS Safety Report 10736120 (Version 2)
Quarter: 2015Q1

REPORT INFORMATION
  Report Type: Spontaneous
  Country: DE (occurrence: DE)
  Receive Date: 20150126
  Receipt Date: 20150206
  Transmission Date: 20150721
  Serious: Yes (Life-Threatening, Hospitalization, Disabling, Other)
  Sender: FDA-Public Use
  Company Number: DE-JNJFOC-20150112439

PATIENT
  Age: 82 Year
  Sex: Male
  Weight: 92 kg

DRUGS (2)
  1. XARELTO [Suspect]
     Active Substance: RIVAROXABAN
     Indication: CEREBROVASCULAR ACCIDENT PROPHYLAXIS
     Dosage: 4425 MILLIGRAM
     Route: 048
     Dates: start: 20131212, end: 20141002
  2. XARELTO [Suspect]
     Active Substance: RIVAROXABAN
     Indication: ATRIAL FIBRILLATION
     Dosage: 4425 MILLIGRAM
     Route: 048
     Dates: start: 20131212, end: 20141002

REACTIONS (3)
  - Cardiac tamponade [Recovering/Resolving]
  - Pericardial haemorrhage [Recovering/Resolving]
  - Acute left ventricular failure [Recovering/Resolving]

NARRATIVE: CASE EVENT DATE: 20141002
